FAERS Safety Report 16658339 (Version 1)
Quarter: 2019Q3

REPORT INFORMATION
  Report Type: Spontaneous
  Country: GB (occurrence: GB)
  Receive Date: 20190801
  Receipt Date: 20190801
  Transmission Date: 20191004
  Serious: Yes (Hospitalization, Other)
  Sender: FDA-Public Use
  Company Number: GB-MYLANLABS-2019M1071834

PATIENT
  Age: 36 Year
  Sex: Female

DRUGS (1)
  1. SALBUTAMOL [Suspect]
     Active Substance: ALBUTEROL
     Indication: ASTHMA
     Dosage: UNK

REACTIONS (5)
  - Lactic acidosis [Unknown]
  - Chest pain [Unknown]
  - Intentional overdose [Unknown]
  - Tachycardia [Unknown]
  - Hypokalaemia [Unknown]
